FAERS Safety Report 25816688 (Version 2)
Quarter: 2025Q3

REPORT INFORMATION
  Report Type: Report from Study
  Country: CA (occurrence: CA)
  Receive Date: 20250918
  Receipt Date: 20250926
  Transmission Date: 20251021
  Serious: Yes (Hospitalization, Other)
  Sender: ALEXION PHARMACEUTICALS
  Company Number: CA-AstraZeneca-CH-00916236A

PATIENT
  Age: 81 Year
  Sex: Female

DRUGS (18)
  1. BENRALIZUMAB [Suspect]
     Active Substance: BENRALIZUMAB
     Indication: Asthma
  2. BENRALIZUMAB [Suspect]
     Active Substance: BENRALIZUMAB
  3. PREDNISONE [Concomitant]
     Active Substance: PREDNISONE
     Route: 065
  4. TRELEGY ELLIPTA [Concomitant]
     Active Substance: FLUTICASONE FUROATE\UMECLIDINIUM BROMIDE\VILANTEROL TRIFENATATE
     Route: 065
  5. VENTOLIN [Concomitant]
     Active Substance: ALBUTEROL SULFATE
     Route: 065
  6. AMLODIPINE [Concomitant]
     Active Substance: AMLODIPINE BESYLATE
     Route: 065
  7. ATORVASTATIN [Concomitant]
     Active Substance: ATORVASTATIN
     Route: 065
  8. FASENRA [Concomitant]
     Active Substance: BENRALIZUMAB
     Dosage: 30 MILLIGRAM, Q8W
  9. BETAHISTINE [Concomitant]
     Active Substance: BETAHISTINE
     Dosage: 16 MILLIGRAM, BID
  10. EZETIMIBE [Concomitant]
     Active Substance: EZETIMIBE
     Route: 065
  11. FERROUS FUMARATE [Concomitant]
     Active Substance: FERROUS FUMARATE
     Dosage: 300 MILLIGRAM, QD
     Route: 065
  12. IPRATROPIUM BROMIDE [Concomitant]
     Active Substance: IPRATROPIUM BROMIDE
     Indication: Dyspnoea
     Route: 065
  13. PANTOPRAZOLE [Concomitant]
     Active Substance: PANTOPRAZOLE
     Dosage: 40 MILLIGRAM, QD
     Route: 065
  14. PERINDOPRIL [Concomitant]
     Active Substance: PERINDOPRIL
     Dosage: 8 MILLIGRAM, QD
     Route: 065
  15. ALBUTEROL [Concomitant]
     Active Substance: ALBUTEROL
     Indication: Dyspnoea
     Route: 065
  16. SENOKOT [Concomitant]
     Active Substance: SENNOSIDES
     Indication: Constipation
     Route: 065
  17. TRAZODONE [Concomitant]
     Active Substance: TRAZODONE HYDROCHLORIDE
     Route: 065
  18. VENLAFAXINE [Concomitant]
     Active Substance: VENLAFAXINE HYDROCHLORIDE
     Dosage: 75 MILLIGRAM, QD
     Route: 065

REACTIONS (18)
  - Asthma [Unknown]
  - Gastrointestinal infection [Unknown]
  - Influenza [Unknown]
  - Troponin increased [Unknown]
  - Chest pain [Unknown]
  - Diarrhoea haemorrhagic [Unknown]
  - Vomiting [Unknown]
  - Serum ferritin increased [Unknown]
  - Blood iron decreased [Unknown]
  - Acute kidney injury [Unknown]
  - Electrocardiogram QT prolonged [Unknown]
  - Hypertension [Unknown]
  - Abdominal pain [Unknown]
  - Clostridium difficile infection [Unknown]
  - Pneumonia [Unknown]
  - Haematochezia [Unknown]
  - Haemorrhoids [Unknown]
  - Colitis [Unknown]
